FAERS Safety Report 12373694 (Version 2)
Quarter: 2016Q2

REPORT INFORMATION
  Report Type: Spontaneous
  Country: KR (occurrence: KR)
  Receive Date: 20160516
  Receipt Date: 20160523
  Transmission Date: 20160815
  Serious: No
  Sender: FDA-Public Use
  Company Number: KR-009507513-1605KOR007841

PATIENT
  Age: 63 Year
  Sex: Male
  Weight: 56.8 kg

DRUGS (22)
  1. CISPLAN [Concomitant]
     Active Substance: CISPLATIN
     Indication: OESOPHAGEAL CARCINOMA
     Dosage: 120 MG, ONCE, CYCLE 1
     Route: 042
     Dates: start: 20150417, end: 20150417
  2. ALMAGEL F [Concomitant]
     Indication: GASTROOESOPHAGEAL REFLUX DISEASE
     Dosage: 1.5 G, QID
     Route: 048
     Dates: start: 2015
  3. LANSTON [Concomitant]
     Active Substance: LANSOPRAZOLE
     Indication: GASTROOESOPHAGEAL REFLUX DISEASE
     Dosage: 15 MG, QD
     Route: 048
     Dates: start: 2015
  4. ACTIQ [Concomitant]
     Active Substance: FENTANYL CITRATE
     Indication: PAIN PROPHYLAXIS
     Dosage: 400 MG, QID
     Route: 048
  5. URANTAC [Concomitant]
     Indication: GASTROOESOPHAGEAL REFLUX DISEASE
     Dosage: 50 MG, TID
     Route: 042
     Dates: start: 20150418, end: 20150421
  6. SMOFLIPID [Concomitant]
     Active Substance: FISH OIL\MEDIUM-CHAIN TRIGLYCERIDES\OLIVE OIL\SOYBEAN OIL
     Dosage: 250 ML, ONCE
     Route: 042
     Dates: start: 20150413, end: 20150413
  7. KYTRIL [Concomitant]
     Active Substance: GRANISETRON HYDROCHLORIDE
     Indication: PREMEDICATION
     Dosage: 1 MG, ONCE
     Route: 042
     Dates: start: 20150417, end: 20150417
  8. DESOWEN [Concomitant]
     Active Substance: DESONIDE
     Indication: PRURITUS
     Dosage: 120 ML, ONCE
     Dates: start: 201504, end: 2015
  9. BENZYDAMINE HYDROCHLORIDE [Concomitant]
     Active Substance: BENZYDAMINE HYDROCHLORIDE
     Indication: OROPHARYNGEAL PAIN
     Dosage: 100 ML, ONCE
     Dates: start: 201504, end: 2015
  10. DENOGAN [Concomitant]
     Indication: PAIN PROPHYLAXIS
     Dosage: 1 G, ONCE
     Route: 042
     Dates: start: 20150424, end: 20150424
  11. MEGACE F [Concomitant]
     Indication: PROPHYLAXIS
     Dosage: 625 MG, UNK
     Route: 048
     Dates: start: 2015
  12. GASMOTIN [Concomitant]
     Active Substance: MOSAPRIDE CITRATE
     Indication: GASTROOESOPHAGEAL REFLUX DISEASE
     Dosage: 1 TABLET, TID
     Route: 048
     Dates: start: 2015
  13. EMEND (FOSAPREPITANT DIMEGLUMINE) [Suspect]
     Active Substance: FOSAPREPITANT DIMEGLUMINE
     Indication: PROPHYLAXIS OF NAUSEA AND VOMITING
     Dosage: 150 MG, ONCE
     Route: 042
     Dates: start: 20150420, end: 20150420
  14. SMOFLIPID [Concomitant]
     Active Substance: FISH OIL\MEDIUM-CHAIN TRIGLYCERIDES\OLIVE OIL\SOYBEAN OIL
     Dosage: 500 ML, QD
     Route: 042
     Dates: start: 20150424, end: 20160424
  15. DEXAMETHASONE SODIUM PHOSPHATE. [Concomitant]
     Active Substance: DEXAMETHASONE SODIUM PHOSPHATE
     Indication: PREMEDICATION
     Dosage: 5 MG, QD
     Route: 042
     Dates: start: 20150417, end: 20150420
  16. LASIX [Concomitant]
     Active Substance: FUROSEMIDE
     Indication: PREMEDICATION
     Dosage: 20 MG, ONCE
     Route: 042
     Dates: start: 20150417, end: 20150417
  17. FLUOROURACIL. [Concomitant]
     Active Substance: FLUOROURACIL
     Indication: SQUAMOUS CELL CARCINOMA
     Dosage: 1600 MG, ONCE, CYCLE 1
     Route: 042
     Dates: start: 20150417, end: 20150420
  18. DUROGESIC [Concomitant]
     Active Substance: FENTANYL
     Indication: PAIN
     Dosage: 12 MICROGRAM, ONCE
     Route: 062
     Dates: start: 2015
  19. SMOFLIPID [Concomitant]
     Active Substance: FISH OIL\MEDIUM-CHAIN TRIGLYCERIDES\OLIVE OIL\SOYBEAN OIL
     Indication: DYSPEPSIA
     Dosage: 250 ML, ONCE
     Route: 042
     Dates: start: 20150410, end: 20150410
  20. ANYCOUGH [Concomitant]
     Active Substance: THEOBROMINE
     Indication: COUGH
     Dosage: 300 MG, BID
     Route: 048
     Dates: start: 20150408, end: 201504
  21. CODAEWON FORTE [Concomitant]
     Indication: COUGH
     Dosage: 20 ML, TID
     Route: 048
     Dates: start: 20150408, end: 2015
  22. PROAMIN [Concomitant]
     Indication: DYSPEPSIA
     Dosage: 500 ML, ONCE
     Route: 042
     Dates: start: 20150421, end: 20150421

REACTIONS (2)
  - Dyspepsia [Recovering/Resolving]
  - Pain [Recovering/Resolving]

NARRATIVE: CASE EVENT DATE: 20150424
